FAERS Safety Report 4969404-2 (Version None)
Quarter: 2006Q2

REPORT INFORMATION
  Report Type: 
  Country: None (occurrence: None)
  Receive Date: 20060405
  Receipt Date: 20060322
  Transmission Date: 20061013
  Serious: Yes (Death)
  Sender: FDA-Public Use
  Company Number: 144040USA

PATIENT
  Age: 72 Year
  Sex: Female

DRUGS (7)
  1. COPAXONE [Suspect]
     Indication: MULTIPLE SCLEROSIS
     Dosage: 20 MILLIGRAM QD SUBCUTANEOUS
     Route: 058
     Dates: end: 20051201
  2. XANAX [Concomitant]
  3. AMBIEN [Concomitant]
  4. NORVASC [Concomitant]
  5. NEURONTIN [Concomitant]
  6. FOLIC ACID [Concomitant]
  7. OSCAL [Concomitant]

REACTIONS (4)
  - BLADDER CANCER [None]
  - HAEMATOCHEZIA [None]
  - PAIN IN EXTREMITY [None]
  - PUBIC PAIN [None]
